FAERS Safety Report 6211111-2 (Version None)
Quarter: 2009Q2

REPORT INFORMATION
  Report Type: 
  Country: None (occurrence: None)
  Receive Date: 20090602
  Receipt Date: 20090525
  Transmission Date: 20091009
  Serious: Yes (Other)
  Sender: FDA-Public Use
  Company Number: DE-BAYER-200921259GPV

PATIENT
  Sex: Female
  Weight: 72 kg

DRUGS (3)
  1. ANGELIQ [Suspect]
     Indication: MENOPAUSAL SYMPTOMS
     Route: 048
     Dates: start: 20090201
  2. CLIMODIEN [Suspect]
     Indication: DRUG USE FOR UNKNOWN INDICATION
     Route: 048
     Dates: start: 20090301
  3. JODID [Concomitant]
     Indication: DRUG USE FOR UNKNOWN INDICATION
     Route: 048

REACTIONS (3)
  - BLOOD CREATININE INCREASED [None]
  - RENAL FAILURE ACUTE [None]
  - TUBULOINTERSTITIAL NEPHRITIS [None]
